FAERS Safety Report 6396113-8 (Version None)
Quarter: 2009Q4

REPORT INFORMATION
  Report Type: 
  Country: None (occurrence: None)
  Receive Date: 20091009
  Receipt Date: 20090929
  Transmission Date: 20100525
  Serious: Yes (Hospitalization, Other)
  Sender: FDA-Public Use
  Company Number: DE-ABBOTT-09P-062-0572752-00

PATIENT
  Sex: Male
  Weight: 96 kg

DRUGS (22)
  1. HUMIRA [Suspect]
     Indication: RHEUMATOID ARTHRITIS
     Route: 058
     Dates: start: 20050601, end: 20081024
  2. LEFLUNOMIDE [Concomitant]
     Indication: RHEUMATOID ARTHRITIS
     Dosage: 20 MG PER WEEK
     Route: 048
     Dates: end: 20081201
  3. NON STEROIDAL ANTIRHEUMATIC DRUG [Concomitant]
     Indication: RHEUMATOID ARTHRITIS
     Dosage: UNK.
  4. PREDNISOLONE [Concomitant]
     Indication: RHEUMATOID ARTHRITIS
     Dosage: 12.5 MG OD
     Route: 048
  5. PREDNISOLONE [Concomitant]
  6. ATACAND HCT [Concomitant]
     Indication: DRUG USE FOR UNKNOWN INDICATION
     Dosage: 16/12.5MG OPD
  7. CARMEN [Concomitant]
     Indication: DRUG USE FOR UNKNOWN INDICATION
     Dosage: OPD
  8. IRON-II-SULFAT [Concomitant]
     Indication: DRUG USE FOR UNKNOWN INDICATION
     Dosage: EVERY OTHER DAY
  9. MANIL [Concomitant]
     Indication: DRUG USE FOR UNKNOWN INDICATION
     Dosage: OPD
  10. OMEPROZOL [Concomitant]
     Indication: DRUG USE FOR UNKNOWN INDICATION
     Dosage: OPD
  11. CALCIUM/VITAMIN D3 [Concomitant]
     Indication: DRUG USE FOR UNKNOWN INDICATION
     Dosage: OPD
  12. CIPROFLOXACIN HYDROCHLORIDE [Concomitant]
     Indication: DRUG USE FOR UNKNOWN INDICATION
  13. RIFAMPICIN [Concomitant]
     Indication: DRUG USE FOR UNKNOWN INDICATION
  14. CARBIMAZOL [Concomitant]
     Indication: THYROID ADENOMA
     Dosage: OPD
  15. ATROVENT [Concomitant]
     Indication: NASOPHARYNGITIS
     Route: 055
  16. SULTANOL [Concomitant]
     Indication: NASOPHARYNGITIS
  17. ACETAMINOPHEN W/ CODEINE [Concomitant]
     Indication: DRUG USE FOR UNKNOWN INDICATION
  18. CLINDAMYCIN HYDROCHLORIDE [Concomitant]
     Indication: DRUG USE FOR UNKNOWN INDICATION
     Route: 048
  19. TALVOSILEN [Concomitant]
     Indication: DRUG USE FOR UNKNOWN INDICATION
  20. PANTOZOL 20 [Concomitant]
     Indication: DRUG USE FOR UNKNOWN INDICATION
     Dosage: OPD
  21. TRAMADOL HYDROCHLORIDE [Concomitant]
     Indication: DRUG USE FOR UNKNOWN INDICATION
     Dosage: AS NEEDED
  22. FRAGMIN [Concomitant]
     Indication: DRUG USE FOR UNKNOWN INDICATION
     Dosage: OPD
     Route: 058

REACTIONS (18)
  - ARTERIOSCLEROSIS [None]
  - ARTHRITIS BACTERIAL [None]
  - CARDIOMEGALY [None]
  - COUGH [None]
  - DYSPNOEA [None]
  - EMPHYSEMA [None]
  - GAIT DISTURBANCE [None]
  - HYPOVENTILATION [None]
  - IMPAIRED HEALING [None]
  - JOINT EFFUSION [None]
  - KNEE ARTHROPLASTY [None]
  - OSTEOCHONDROSIS [None]
  - OSTEONECROSIS [None]
  - POST PROCEDURAL FISTULA [None]
  - PROCEDURAL PAIN [None]
  - PULMONARY FIBROSIS [None]
  - RHEUMATOID ARTHRITIS [None]
  - TRAUMATIC LUNG INJURY [None]
